FAERS Safety Report 11103844 (Version 2)
Quarter: 2015Q2

REPORT INFORMATION
  Report Type: Spontaneous
  Country: US (occurrence: US)
  Receive Date: 20150511
  Receipt Date: 20150604
  Transmission Date: 20150821
  Serious: No
  Sender: FDA-Public Use
  Company Number: US-009507513-1505USA002347

PATIENT

DRUGS (1)
  1. BELSOMRA [Suspect]
     Active Substance: SUVOREXANT
     Dosage: PRESCRIBED THE ^MAXIMUM DOSE^
     Route: 048

REACTIONS (2)
  - Incorrect dosage administered [Unknown]
  - Drug ineffective [Unknown]
